FAERS Safety Report 12288185 (Version 1)
Quarter: 2016Q2

REPORT INFORMATION
  Report Type: Spontaneous
  Country: US (occurrence: US)
  Receive Date: 20160420
  Receipt Date: 20160420
  Transmission Date: 20160815
  Serious: No
  Sender: FDA-Public Use
  Company Number: US-MDT-ADR-2016-00157

PATIENT
  Sex: Female
  Weight: 56 kg

DRUGS (25)
  1. MULTI VITAMIN [Concomitant]
     Active Substance: VITAMINS
  2. ASCORBIC ACID. [Concomitant]
     Active Substance: ASCORBIC ACID
  3. VITAMIN B1 [Concomitant]
     Active Substance: THIAMINE HYDROCHLORIDE
  4. MANGANESE [Concomitant]
     Active Substance: MANGANESE\MANGANESE CHLORIDE
  5. POTASSIUM [Concomitant]
     Active Substance: POTASSIUM
  6. PYRIDOXINE HYDROCHLORIDE. [Concomitant]
     Active Substance: PYRIDOXINE HYDROCHLORIDE
  7. BACLOFEN. [Suspect]
     Active Substance: BACLOFEN
  8. FOLIC ACID. [Concomitant]
     Active Substance: FOLIC ACID
  9. MAGNESIUM [Concomitant]
     Active Substance: MAGNESIUM
  10. NICOTINAMIDE [Concomitant]
     Active Substance: NIACINAMIDE
  11. VITAMIN B1 [Concomitant]
     Active Substance: THIAMINE HYDROCHLORIDE
  12. CHROMIUM [Concomitant]
     Active Substance: CHROMIC CHLORIDE\CHROMIUM
  13. COPPER [Concomitant]
     Active Substance: COPPER
  14. RETINOL [Concomitant]
     Active Substance: RETINOL
  15. ALBUTEROL. [Concomitant]
     Active Substance: ALBUTEROL
     Route: 055
  16. VITAMIN B12 [Concomitant]
     Active Substance: CYANOCOBALAMIN
  17. RIBOFLAVIN [Concomitant]
     Active Substance: RIBOFLAVIN
  18. PANTOTHENIC ACID [Concomitant]
     Active Substance: PANTOTHENIC ACID
  19. ADVAIR HFA [Concomitant]
     Active Substance: FLUTICASONE PROPIONATE\SALMETEROL XINAFOATE
     Route: 055
  20. DITROPAN [Concomitant]
     Active Substance: OXYBUTYNIN CHLORIDE
  21. SELENIUM [Concomitant]
     Active Substance: SELENIUM
  22. VITAMIN E [Concomitant]
     Active Substance: .ALPHA.-TOCOPHEROL
  23. VITAMIN D [Concomitant]
     Active Substance: CHOLECALCIFEROL
  24. INOSITOL [Concomitant]
     Active Substance: INOSITOL
  25. GILENYA [Suspect]
     Active Substance: FINGOLIMOD HYDROCHLORIDE
     Indication: MULTIPLE SCLEROSIS
     Dosage: 0.5 MG QD
     Route: 048

REACTIONS (1)
  - Pain in extremity [Unknown]
